FAERS Safety Report 20296206 (Version 2)
Quarter: 2022Q2

REPORT INFORMATION
  Report Type: Spontaneous
  Country: FR (occurrence: FR)
  Receive Date: 20220105
  Receipt Date: 20220607
  Transmission Date: 20220721
  Serious: Yes (Hospitalization)
  Sender: FDA-Public Use
  Company Number: FR-AFSSAPS-PP20211678

PATIENT
  Age: 77 Year
  Sex: Female
  Weight: 57 kg

DRUGS (4)
  1. AZITHROMYCIN [Suspect]
     Active Substance: AZITHROMYCIN
     Indication: Lung disorder
     Dosage: 250 MILLIGRAM, DAILY
     Route: 048
     Dates: start: 20210205
  2. RIFAMPIN [Suspect]
     Active Substance: RIFAMPIN
     Indication: Lung disorder
     Dosage: 600 MILLIGRAM, DAILY
     Route: 048
     Dates: start: 20210205
  3. ALTHIAZIDE [Suspect]
     Active Substance: ALTHIAZIDE
     Indication: Lung disorder
     Dosage: 600 MILLIGRAM, DAILY
     Route: 048
     Dates: start: 20210205
  4. TOCILIZUMAB [Suspect]
     Active Substance: TOCILIZUMAB
     Indication: Giant cell arteritis
     Dosage: 162MG, 2/MONTH
     Route: 058
     Dates: start: 202101

REACTIONS (1)
  - Neutropenia [Not Recovered/Not Resolved]

NARRATIVE: CASE EVENT DATE: 20211112
